FAERS Safety Report 7903631-7 (Version None)
Quarter: 2011Q4

REPORT INFORMATION
  Report Type: 
  Country: None (occurrence: None)
  Receive Date: 20111109
  Receipt Date: 20111031
  Transmission Date: 20120403
  Serious: Yes (Hospitalization, Other)
  Sender: FDA-Public Use
  Company Number: JP-PFIZER INC-2011212283

PATIENT
  Age: 85 Year
  Sex: Male

DRUGS (5)
  1. AMLODIPINE BESYLATE [Suspect]
     Dosage: UNK
     Route: 048
     Dates: end: 20110101
  2. CLOPIDOGREL BISULFATE [Suspect]
     Dosage: UNK
     Route: 048
     Dates: end: 20110101
  3. ACETYLSALICYLIC ACID [Concomitant]
     Route: 048
  4. LANSOPRAZOLE [Suspect]
     Dosage: UNK
     Route: 048
     Dates: end: 20110101
  5. DILTIAZEM HYDROCHLORIDE [Concomitant]
     Route: 048

REACTIONS (2)
  - RENAL FAILURE [None]
  - COLITIS MICROSCOPIC [None]
